FAERS Safety Report 9565623 (Version 2)
Quarter: 2013Q4

REPORT INFORMATION
  Report Type: Spontaneous
  Country: CN (occurrence: CN)
  Receive Date: 20130930
  Receipt Date: 20131001
  Transmission Date: 20140711
  Serious: Yes (Other)
  Sender: FDA-Public Use
  Company Number: CN-009507513-1309CHN012656

PATIENT
  Age: 26 Year
  Sex: Male

DRUGS (1)
  1. CLARITYNE [Suspect]
     Indication: CHRONIC SPONTANEOUS URTICARIA
     Dosage: 1 TABLET, ONCE
     Route: 048
     Dates: start: 20130922, end: 20130922

REACTIONS (3)
  - Deafness [Recovered/Resolved]
  - Hearing impaired [Recovered/Resolved]
  - Ear discomfort [Recovered/Resolved]
